FAERS Safety Report 24074780 (Version 1)
Quarter: 2024Q3

REPORT INFORMATION
  Report Type: Spontaneous
  Country: ES (occurrence: ES)
  Receive Date: 20240710
  Receipt Date: 20240710
  Transmission Date: 20241016
  Serious: Yes (Other)
  Sender: PIERRE FABRE MEDICAMENT
  Company Number: None

PATIENT
  Age: 78 Year
  Sex: Female
  Weight: 63 kg

DRUGS (3)
  1. PROPRANOLOL [Interacting]
     Active Substance: PROPRANOLOL HYDROCHLORIDE
     Indication: Atrial fibrillation
     Dosage: 10 MG
     Route: 048
     Dates: start: 20231114, end: 20231115
  2. PROPRANOLOL [Interacting]
     Active Substance: PROPRANOLOL HYDROCHLORIDE
     Indication: Off label use
  3. BISOPROLOL [Interacting]
     Active Substance: BISOPROLOL\BISOPROLOL FUMARATE
     Indication: Atrial fibrillation
     Dosage: 5 MG
     Route: 048
     Dates: start: 20230913, end: 20231115

REACTIONS (4)
  - Bradycardia [Recovered/Resolved]
  - Product use issue [Unknown]
  - Product use in unapproved indication [Unknown]
  - Off label use [Unknown]

NARRATIVE: CASE EVENT DATE: 20231114
